FAERS Safety Report 11679906 (Version 6)
Quarter: 2020Q2

REPORT INFORMATION
  Report Type: Spontaneous
  Country: US (occurrence: US)
  Receive Date: 20151029
  Receipt Date: 20200601
  Transmission Date: 20200713
  Serious: Yes (Other)
  Sender: FDA-Public Use
  Company Number: US-UCBSA-2015033993

PATIENT
  Age: 34 Year
  Sex: Female
  Weight: 55.7 kg

DRUGS (1)
  1. CIMZIA [Suspect]
     Active Substance: CERTOLIZUMAB PEGOL
     Indication: CROHN^S DISEASE
     Dosage: 200 MG, EV 2 WEEKS(QOW)
     Route: 058
     Dates: start: 20140718, end: 20150901

REACTIONS (2)
  - Malignant melanoma [Recovered/Resolved]
  - Precancerous cells present [Recovering/Resolving]

NARRATIVE: CASE EVENT DATE: 20150818
